FAERS Safety Report 4339834-0 (Version None)
Quarter: 2004Q2

REPORT INFORMATION
  Report Type: 
  Country: None (occurrence: None)
  Receive Date: 20040412
  Receipt Date: 20040330
  Transmission Date: 20050107
  Serious: Yes (Hospitalization, Disabling)
  Sender: FDA-Public Use
  Company Number: US068840

PATIENT
  Age: 62 Year
  Sex: Female

DRUGS (5)
  1. ENBREL [Suspect]
     Indication: RHEUMATOID ARTHRITIS
     Dosage: 25 MG, 2 IN 1 WEEKS, SC
     Route: 058
     Dates: start: 20010201, end: 20040201
  2. TOLBUTAMIDE [Concomitant]
  3. ATENOLOL [Concomitant]
  4. ALENDRONATE SODIUM [Concomitant]
  5. RAMIPRIL [Concomitant]

REACTIONS (7)
  - ARTHRITIS [None]
  - BLINDNESS [None]
  - DISEASE RECURRENCE [None]
  - HEADACHE [None]
  - OPTIC NERVE INJURY [None]
  - PHOTOPSIA [None]
  - VOMITING [None]
